FAERS Safety Report 7300697-2 (Version None)
Quarter: 2011Q1

REPORT INFORMATION
  Report Type: 
  Country: None (occurrence: None)
  Receive Date: 20110218
  Receipt Date: 20110203
  Transmission Date: 20110831
  Serious: Yes (Hospitalization, Other)
  Sender: FDA-Public Use
  Company Number: IT-CELGENEUS-083-21880-10092543

PATIENT
  Sex: Male

DRUGS (6)
  1. REVLIMID [Suspect]
     Indication: MULTIPLE MYELOMA
     Route: 048
     Dates: start: 20100902, end: 20101111
  2. MELPHALAN [Suspect]
     Indication: MULTIPLE MYELOMA
     Route: 048
     Dates: start: 20100902, end: 20101107
  3. OMEPRAZOLE [Concomitant]
     Route: 065
     Dates: start: 20100902
  4. ALLOPURINOL [Concomitant]
     Route: 065
     Dates: start: 20100902
  5. ENALAPRIL [Concomitant]
     Route: 065
     Dates: start: 20100902
  6. PREDNISONE [Suspect]
     Indication: MULTIPLE MYELOMA
     Route: 048
     Dates: start: 20100902, end: 20101107

REACTIONS (5)
  - HYPERPYREXIA [None]
  - BRONCHOPULMONARY DISEASE [None]
  - INTERSTITIAL LUNG DISEASE [None]
  - NEUTROPENIA [None]
  - LUNG DISORDER [None]
